FAERS Safety Report 5163038-5 (Version None)
Quarter: 2006Q4

REPORT INFORMATION
  Report Type: 
  Country: None (occurrence: None)
  Receive Date: 20061201
  Receipt Date: 20010427
  Transmission Date: 20070319
  Serious: Yes (Hospitalization)
  Sender: FDA-Public Use
  Company Number: FR-BOEHRINGER INGELHEIM PHARMACEUTICALS, INC.-2001-FF-S0257

PATIENT
  Sex: Male

DRUGS (4)
  1. VIRAMUNE [Suspect]
     Indication: ACQUIRED IMMUNODEFICIENCY SYNDROME
     Dosage: 7 MG/KG/DAY X 2
     Route: 048
  2. VIDEX [Concomitant]
     Indication: HIV INFECTION
     Route: 048
  3. ZERIT [Concomitant]
     Indication: HIV INFECTION
     Route: 048
  4. RETROVIR 100 MG/10ML [Concomitant]
     Indication: HIV INFECTION
     Route: 048

REACTIONS (4)
  - CONVULSION [None]
  - DISTURBANCE IN ATTENTION [None]
  - PSYCHOMOTOR SKILLS IMPAIRED [None]
  - SPEECH DISORDER [None]
